FAERS Safety Report 11509246 (Version 3)
Quarter: 2015Q4

REPORT INFORMATION
  Report Type: Spontaneous
  Country: JP (occurrence: JP)
  Receive Date: 20150915
  Receipt Date: 20151029
  Transmission Date: 20160304
  Serious: No
  Sender: FDA-Public Use
  Company Number: JP-SA-2015SA119831

PATIENT
  Age: 65 Year
  Sex: Male
  Weight: 88 kg

DRUGS (13)
  1. ACINON [Concomitant]
     Active Substance: NIZATIDINE
  2. PLAVIX [Suspect]
     Active Substance: CLOPIDOGREL BISULFATE
     Indication: MYOCARDIAL INFARCTION
     Route: 048
     Dates: start: 20150718, end: 20150723
  3. PLAVIX [Suspect]
     Active Substance: CLOPIDOGREL BISULFATE
     Indication: MYOCARDIAL INFARCTION
     Route: 048
     Dates: start: 20140630, end: 20150629
  4. PLAVIX [Suspect]
     Active Substance: CLOPIDOGREL BISULFATE
     Indication: STENT PLACEMENT
     Route: 048
     Dates: start: 20140630, end: 20150629
  5. BUFFERIN [Concomitant]
     Active Substance: ASPIRIN
     Indication: MYOCARDIAL INFARCTION
  6. ASPIRIN. [Concomitant]
     Active Substance: ASPIRIN
     Indication: MYOCARDIAL INFARCTION
     Dates: end: 20140630
  7. ACTOS [Concomitant]
     Active Substance: PIOGLITAZONE HYDROCHLORIDE
     Indication: DIABETES MELLITUS
     Dates: start: 20150119, end: 20150629
  8. TAKEPRON [Concomitant]
     Active Substance: LANSOPRAZOLE
     Indication: MUCOUS MEMBRANE DISORDER
     Route: 048
     Dates: start: 20140630, end: 20150629
  9. ULCERLMIN [Concomitant]
     Active Substance: SUCRALFATE
     Indication: MUCOUS MEMBRANE DISORDER
     Route: 048
     Dates: start: 20140630, end: 20150629
  10. LANTUS [Concomitant]
     Active Substance: INSULIN GLARGINE
     Indication: DIABETES MELLITUS
     Dosage: DOSE:6 UNIT(S)
     Route: 058
     Dates: start: 20140630, end: 20150119
  11. MUCOSTA [Concomitant]
     Active Substance: REBAMIPIDE
  12. PLAVIX [Suspect]
     Active Substance: CLOPIDOGREL BISULFATE
     Indication: STENT PLACEMENT
     Route: 048
     Dates: start: 20150718, end: 20150723
  13. NESINA [Concomitant]
     Active Substance: ALOGLIPTIN BENZOATE
     Indication: DIABETES MELLITUS
     Route: 048
     Dates: start: 20140630

REACTIONS (2)
  - Myalgia [Recovering/Resolving]
  - Myalgia [Recovering/Resolving]

NARRATIVE: CASE EVENT DATE: 2014
